FAERS Safety Report 7045565-9 (Version None)
Quarter: 2010Q3

REPORT INFORMATION
  Report Type: 
  Country: None (occurrence: None)
  Receive Date: 20100929
  Receipt Date: 20100726
  Transmission Date: 20110219
  Serious: No
  Sender: FDA-Public Use
  Company Number: US-WYE-H16683210

PATIENT
  Sex: Female

DRUGS (1)
  1. PRISTIQ [Suspect]
     Dates: end: 20100722

REACTIONS (1)
  - DRUG WITHDRAWAL SYNDROME [None]
